FAERS Safety Report 4556531-7 (Version None)
Quarter: 2005Q1

REPORT INFORMATION
  Report Type: 
  Country: None (occurrence: None)
  Receive Date: 20050114
  Receipt Date: 20050110
  Transmission Date: 20050727
  Serious: Yes (Death)
  Sender: FDA-Public Use
  Company Number: 200409223

PATIENT
  Age: 76 Year
  Sex: Female

DRUGS (10)
  1. STREPTOKINASE [Suspect]
     Indication: MYOCARDIAL INFARCTION
     Dosage: 1.5 MIU DAILY IV
     Route: 042
     Dates: start: 20041203, end: 20041203
  2. ASPIRIN [Suspect]
     Indication: MYOCARDIAL INFARCTION
     Dosage: 300 MG DAILY PO
     Route: 048
     Dates: start: 20041203, end: 20041203
  3. ENOXAPARIN SODIUM [Suspect]
     Indication: MYOCARDIAL INFARCTION
     Dosage: IV
     Route: 042
     Dates: start: 20041203, end: 20041204
  4. METOPROLOL [Concomitant]
  5. FUROSEMIDE [Concomitant]
  6. KALIPOZ-PROLONGATUM [Concomitant]
  7. AMIODARONE [Concomitant]
  8. GLUCOSE [Concomitant]
  9. INSULIN [Concomitant]
  10. POTASSIUM CHLORIDE [Concomitant]

REACTIONS (3)
  - ACUTE MYOCARDIAL INFARCTION [None]
  - ELECTROMECHANICAL DISSOCIATION [None]
  - RESPIRATORY ARREST [None]
